FAERS Safety Report 9013274 (Version 1)
Quarter: 2013Q1

REPORT INFORMATION
  Report Type: Spontaneous
  Country: US (occurrence: None)
  Receive Date: 20130107
  Receipt Date: 20130107
  Transmission Date: 20140127
  Serious: Yes (Disabling, Other)
  Sender: FDA-Public Use
  Company Number: None

PATIENT
  Age: 29 Year
  Sex: Female
  Weight: 67.13 kg

DRUGS (1)
  1. CYMBALTA [Suspect]
     Indication: PAIN
     Route: 048

REACTIONS (8)
  - Drug effect decreased [None]
  - Night sweats [None]
  - Drug withdrawal syndrome [None]
  - Dizziness [None]
  - Paraesthesia [None]
  - Drug dependence [None]
  - Poisoning [None]
  - Malaise [None]
